FAERS Safety Report 23196973 (Version 1)
Quarter: 2023Q4

REPORT INFORMATION
  Report Type: Spontaneous
  Country: US (occurrence: None)
  Receive Date: 20231116
  Receipt Date: 20231116
  Transmission Date: 20240110
  Serious: Yes (Disabling)
  Sender: FDA-Public Use
  Company Number: None

PATIENT
  Age: 71 Year
  Sex: Male
  Weight: 111.6 kg

DRUGS (9)
  1. POLYMYXIN B SULFATE [Suspect]
     Active Substance: POLYMYXIN B SULFATE
     Indication: Conjunctivitis
     Dosage: FREQUENCY : 3 TIMES A DAY;?
     Route: 047
     Dates: start: 2021, end: 20211003
  2. Dexcom G6 [Concomitant]
  3. LANTUS [Concomitant]
     Active Substance: INSULIN GLARGINE
  4. PANTOPRAZOLE [Concomitant]
     Active Substance: PANTOPRAZOLE
  5. ATORVASTATIN [Concomitant]
     Active Substance: ATORVASTATIN
  6. Baby Bayer [Concomitant]
  7. ELIQUIS [Concomitant]
     Active Substance: APIXABAN
  8. VITAMIN B [Concomitant]
     Active Substance: VITAMIN B
  9. DIETARY SUPPLEMENT [Concomitant]
     Active Substance: DIETARY SUPPLEMENT

REACTIONS (3)
  - Eye infection [None]
  - Blindness unilateral [None]
  - Condition aggravated [None]

NARRATIVE: CASE EVENT DATE: 20210926
